FAERS Safety Report 4616220-7 (Version None)
Quarter: 2005Q1

REPORT INFORMATION
  Report Type: 
  Country: None (occurrence: None)
  Receive Date: 20050321
  Receipt Date: 20050307
  Transmission Date: 20050727
  Serious: Yes (Other)
  Sender: FDA-Public Use
  Company Number: 2005-126178-NL

PATIENT
  Sex: Female

DRUGS (6)
  1. UROFOLLITROPIN [Suspect]
  2. CHORIONIC GONADOTROPIN [Suspect]
  3. PROGESTERONE [Suspect]
     Dosage: DF, IMTRAMUSCULAR, 25-50 MG
     Route: 030
  4. LUPRON NI [Concomitant]
  5. METHYLPREDNISOLONE NI [Concomitant]
  6. TETRACYCLINE NI [Concomitant]

REACTIONS (3)
  - BORDERLINE OVARIAN TUMOUR [None]
  - NEOPLASM RECURRENCE [None]
  - PREGNANCY [None]
